FAERS Safety Report 8563165 (Version 4)
Quarter: 2013Q4

REPORT INFORMATION
  Report Type: Spontaneous
  Country: US (occurrence: US)
  Receive Date: 20120515
  Receipt Date: 20131031
  Transmission Date: 20140711
  Serious: Yes (Disabling)
  Sender: FDA-Public Use
  Company Number: US-009507513-1205USA00425

PATIENT
  Sex: Female

DRUGS (7)
  1. SINGULAIR [Suspect]
     Indication: ASTHMA
     Dosage: 10 MG, QD
     Route: 048
     Dates: start: 20120326, end: 20120501
  2. DULERA [Suspect]
  3. HYDROCHLOROTHIAZIDE [Concomitant]
  4. ADVIL [Concomitant]
  5. ALLEGRA [Concomitant]
  6. XOPENEX [Concomitant]
  7. PREVACID [Concomitant]

REACTIONS (2)
  - Gastritis [Recovered/Resolved]
  - Oesophagitis [Recovered/Resolved]
